FAERS Safety Report 8092051-3 (Version None)
Quarter: 2012Q1

REPORT INFORMATION
  Report Type: 
  Country: None (occurrence: None)
  Receive Date: 20120129
  Receipt Date: 20111108
  Transmission Date: 20120608
  Serious: No
  Sender: FDA-Public Use
  Company Number: US-ABBOTT-11P-163-0872861-00

PATIENT
  Sex: Female
  Weight: 65.376 kg

DRUGS (6)
  1. UNKNOWN ANTIBIOTICS [Concomitant]
     Indication: URINARY TRACT INFECTION
  2. HUMIRA [Suspect]
     Indication: RHEUMATOID ARTHRITIS
  3. CRESTOR [Concomitant]
     Indication: BLOOD CHOLESTEROL INCREASED
  4. FOLIC ACID [Concomitant]
     Indication: SUPPLEMENTATION THERAPY
  5. CALCIUM [Concomitant]
     Indication: SUPPLEMENTATION THERAPY
  6. METHOTREXATE [Concomitant]
     Indication: RHEUMATOID ARTHRITIS

REACTIONS (2)
  - URINARY TRACT PAIN [None]
  - URINARY TRACT INFECTION [None]
